FAERS Safety Report 10077158 (Version 2)
Quarter: 2014Q2

REPORT INFORMATION
  Report Type: Spontaneous
  Country: US (occurrence: US)
  Receive Date: 20140414
  Receipt Date: 20140414
  Transmission Date: 20141212
  Serious: Yes (Hospitalization, Other)
  Sender: FDA-Public Use
  Company Number: PHHY2014US041887

PATIENT
  Age: 24 Year
  Sex: Male

DRUGS (3)
  1. BACLOFEN INTRATHECAL [Suspect]
     Indication: MUSCLE SPASTICITY
     Dosage: 1600 UG, PER DAY
     Route: 037
  2. TIZANIDINE [Suspect]
     Dosage: 4 MG, TID
     Route: 048
  3. VALIUM [Suspect]
     Dosage: DOSE OF 5 TO 10 MG, AT BED TIME AND AS NEEDED
     Route: 048

REACTIONS (6)
  - Pneumonia aspiration [Unknown]
  - Mental status changes [Unknown]
  - Pyrexia [Unknown]
  - Pruritus [Unknown]
  - Muscle spasticity [Unknown]
  - Drug withdrawal syndrome [Unknown]
